FAERS Safety Report 13941060 (Version 2)
Quarter: 2017Q3

REPORT INFORMATION
  Report Type: Spontaneous
  Country: CA (occurrence: CA)
  Receive Date: 20170906
  Receipt Date: 20170912
  Transmission Date: 20171127
  Serious: Yes (Hospitalization, Other)
  Sender: FDA-Public Use
  Company Number: CA-PFIZER INC-2017155533

PATIENT
  Age: 69 Year
  Sex: Female
  Weight: 58 kg

DRUGS (7)
  1. ADVIL [Concomitant]
     Active Substance: IBUPROFEN
     Indication: PAIN
     Dosage: UNK , AS NEEDED
  2. INFLECTRA [Suspect]
     Active Substance: INFLIXIMAB-DYYB
     Indication: COLITIS ULCERATIVE
     Dosage: 300 MG, CYCLIC (EVERY 2,6 WEEKS THEN EVERY 8 WEEKS FOR 12 MONTHS)
     Route: 042
     Dates: start: 20170331
  3. VITAMIN D [Concomitant]
     Active Substance: CHOLECALCIFEROL
     Indication: PROPHYLAXIS
     Dosage: UNK
  4. ELIQUIS [Concomitant]
     Active Substance: APIXABAN
     Dosage: 5 MG, 2X/DAY
  5. FRAGMIN [Suspect]
     Active Substance: DALTEPARIN SODIUM
     Dosage: 100 IU/KG, 2X/DAY
     Route: 058
     Dates: start: 20170329
  6. PREDNISONE. [Concomitant]
     Active Substance: PREDNISONE
     Dosage: UNK
  7. CALCIUM [Concomitant]
     Active Substance: CALCIUM
     Indication: PROPHYLAXIS
     Dosage: UNK

REACTIONS (21)
  - Hepatic steatosis [Unknown]
  - Hiatus hernia [Unknown]
  - Heart rate increased [Unknown]
  - Dysuria [Unknown]
  - Platelet count increased [Unknown]
  - International normalised ratio increased [Unknown]
  - C-reactive protein increased [Unknown]
  - Drug effect incomplete [Unknown]
  - Compression fracture [Unknown]
  - Blood creatinine increased [Unknown]
  - Rectal haemorrhage [Unknown]
  - Blood albumin decreased [Unknown]
  - Abdominal pain [Unknown]
  - Mobility decreased [Recovering/Resolving]
  - Uterine leiomyoma [Unknown]
  - Haemorrhage [Unknown]
  - Neutrophil count increased [Unknown]
  - Infrequent bowel movements [Unknown]
  - Asthenia [Unknown]
  - Dyspnoea [Unknown]
  - Oedema peripheral [Unknown]

NARRATIVE: CASE EVENT DATE: 20170418
